FAERS Safety Report 5397573-1 (Version None)
Quarter: 2007Q3

REPORT INFORMATION
  Report Type: 
  Country: None (occurrence: None)
  Receive Date: 20070726
  Receipt Date: 20070719
  Transmission Date: 20080115
  Serious: Yes (Other)
  Sender: FDA-Public Use
  Company Number: PHBS2007JP08826

PATIENT
  Age: 89 Year
  Sex: Male

DRUGS (4)
  1. VOLTAREN [Suspect]
     Indication: MUSCULOSKELETAL PAIN
     Dosage: 1 DF, UNK
     Route: 061
     Dates: start: 20070227, end: 20070511
  2. CEROCRAL [Concomitant]
     Indication: CEREBRAL INFARCTION
     Dosage: 2 DF, UNK
     Route: 048
  3. NORVASC [Concomitant]
     Indication: CEREBRAL INFARCTION
     Dosage: 2 DF, UNK
     Route: 048
  4. TICLOPIDINE HCL [Concomitant]
     Indication: CEREBRAL INFARCTION
     Dosage: 100 MG, UNK
     Route: 048

REACTIONS (3)
  - APPLICATION SITE EROSION [None]
  - APPLICATION SITE ULCER [None]
  - PRURITUS [None]
